FAERS Safety Report 8032785-X (Version None)
Quarter: 2011Q4

REPORT INFORMATION
  Report Type: 
  Country: None (occurrence: None)
  Receive Date: 20111229
  Receipt Date: 20111221
  Transmission Date: 20120403
  Serious: Yes (Other)
  Sender: FDA-Public Use
  Company Number: 7103356

PATIENT
  Age: 73 Year
  Sex: Female

DRUGS (2)
  1. BISO-HEXAL (BISOPROLOL) (BISOPROLOL HEMIFUMARATE) [Concomitant]
  2. LEVOTHYROXINE SODIUM [Suspect]
     Indication: THYROIDECTOMY
     Dosage: 37.5 MCG (37.5 MCG, 1.5 TABLETS DAILY ORAL
     Route: 048
     Dates: end: 20111220

REACTIONS (1)
  - BLOOD PRESSURE INCREASED [None]
